FAERS Safety Report 15425528 (Version 2)
Quarter: 2018Q4

REPORT INFORMATION
  Report Type: Report from Study
  Country: US (occurrence: US)
  Receive Date: 20180925
  Receipt Date: 20181004
  Transmission Date: 20190204
  Serious: Yes (Hospitalization, Other)
  Sender: FDA-Public Use
  Company Number: US-MALLINCKRODT-T201804026

PATIENT
  Sex: Male
  Weight: 117 kg

DRUGS (1)
  1. REPOSITORY CORTICOTROPIN INJECTION [Suspect]
     Active Substance: CORTICOTROPIN
     Indication: SARCOIDOSIS
     Dosage: 80 UNITS THREE TIMES WEEKLY
     Route: 058
     Dates: start: 201808

REACTIONS (3)
  - Sepsis [Unknown]
  - Loss of personal independence in daily activities [Unknown]
  - Pericardial effusion [Unknown]
